FAERS Safety Report 8370757-6 (Version None)
Quarter: 2012Q2

REPORT INFORMATION
  Report Type: 
  Country: None (occurrence: None)
  Receive Date: 20120518
  Receipt Date: 20120508
  Transmission Date: 20120825
  Serious: Yes (Hospitalization)
  Sender: FDA-Public Use
  Company Number: CA-PFIZER INC-2012112944

PATIENT
  Age: 68 Year
  Sex: Male
  Weight: 108.9 kg

DRUGS (20)
  1. BLINDED THERAPY [Suspect]
     Dosage: 10 MG, 1X/DAY
     Dates: start: 20120418, end: 20120426
  2. ADVAIR DISKUS 100/50 [Concomitant]
     Dosage: 500 UG, AS NEEDED
  3. ATORVASTATIN [Concomitant]
     Dosage: 40 MG, 1X/DAY
  4. RHINOCORT [Concomitant]
     Dosage: 64 UG, DAILY
  5. TERAZOSIN [Concomitant]
     Dosage: 10 MG, 1X/DAY
  6. CYCLOBENZAPRINE [Concomitant]
     Dosage: 10 MG, 1X/DAY
  7. FUROSEMIDE [Concomitant]
     Dosage: 40 MG, 1X/DAY
  8. EFFEXOR XR [Suspect]
     Dosage: 37.5 MG, 1X/DAY
     Dates: start: 20120106, end: 20120112
  9. HUMULIN R [Concomitant]
     Dosage: 20 IU, 2X/DAY
  10. EFFEXOR XR [Suspect]
     Dosage: 75 MG, 1X/DAY
     Dates: start: 20120113, end: 20120129
  11. EFFEXOR XR [Suspect]
     Dosage: 75 MG IN THE MORNING AND 37.5 MG IN THE EVENING
     Dates: start: 20120206, end: 20120229
  12. BLINDED THERAPY [Suspect]
     Dosage: 7 MG, 1X/DAY
     Dates: start: 20120411, end: 20120417
  13. ALLOPURINOL [Concomitant]
     Dosage: 200 MG, DAILY
     Route: 048
  14. RAMIPRIL [Concomitant]
     Dosage: 10 MG, 1X/DAY
  15. EFFEXOR XR [Suspect]
     Dosage: 37.5 MG, 2X/DAY
     Dates: start: 20120130, end: 20120205
  16. EFFEXOR XR [Suspect]
     Dosage: 75 MG, 2X/DAY
     Dates: start: 20120301
  17. BLINDED THERAPY [Suspect]
     Dosage: 2 MG, 1X/DAY
     Dates: start: 20120328, end: 20120403
  18. BLINDED THERAPY [Suspect]
     Dosage: 5 MG, 1X/DAY
     Dates: start: 20120404, end: 20120410
  19. VENTOLIN [Concomitant]
     Dosage: 100 UG, AS NEEDED
  20. HUMALOG [Concomitant]
     Dosage: 20 IU, 2X/DAY

REACTIONS (1)
  - ACUTE MYOCARDIAL INFARCTION [None]
